FAERS Safety Report 11939366 (Version 2)
Quarter: 2016Q1

REPORT INFORMATION
  Report Type: Spontaneous
  Country: BR (occurrence: BR)
  Receive Date: 20160122
  Receipt Date: 20160126
  Transmission Date: 20160526
  Serious: Yes (Other)
  Sender: FDA-Public Use
  Company Number: BR-PFIZER INC-2016029359

PATIENT
  Age: 49 Year
  Sex: Male
  Weight: 88 kg

DRUGS (3)
  1. ALENIA [Concomitant]
     Active Substance: BUDESONIDE\FORMOTEROL FUMARATE
     Indication: ASTHMA
     Dosage: 1 DF, DAILY
  2. CAVERJECT [Suspect]
     Active Substance: ALPROSTADIL
     Indication: ERECTILE DYSFUNCTION
     Dosage: ^15 ML^, AT TIME OF SEXUAL INTERCOURSE
     Dates: start: 20140118
  3. LOSARTAN. [Concomitant]
     Active Substance: LOSARTAN
     Indication: HYPERTENSION
     Dosage: 50 MG, DAILY

REACTIONS (2)
  - Drug ineffective [Unknown]
  - Paraplegia [Not Recovered/Not Resolved]
